FAERS Safety Report 9614483 (Version 2)
Quarter: 2013Q4

REPORT INFORMATION
  Report Type: Spontaneous
  Country: BR (occurrence: BR)
  Receive Date: 20131011
  Receipt Date: 20131106
  Transmission Date: 20140711
  Serious: Yes (Hospitalization)
  Sender: FDA-Public Use
  Company Number: BR-PFIZER INC-2013290233

PATIENT
  Age: 77 Year
  Sex: Female

DRUGS (2)
  1. ZOLOFT [Suspect]
     Indication: DEPRESSION
     Dosage: 50 MG, DAILY
     Route: 048
     Dates: start: 20121008
  2. RIVOTRIL [Concomitant]
     Indication: DEPRESSION
     Dosage: UNK

REACTIONS (1)
  - Cardiac disorder [Unknown]
